FAERS Safety Report 17483496 (Version 1)
Quarter: 2020Q1

REPORT INFORMATION
  Report Type: Spontaneous
  Country: US (occurrence: US)
  Receive Date: 20200229
  Receipt Date: 20200229
  Transmission Date: 20200409
  Serious: Yes (Congenital Anomaly, Other)
  Sender: FDA-Public Use
  Company Number: None

PATIENT
  Age: 56 Year
  Sex: Female
  Weight: 65.7 kg

DRUGS (5)
  1. GLUCOSAMINE CHONDROITIN [Concomitant]
     Active Substance: CHONDROITIN SULFATE (BOVINE)\GLUCOSAMINE HYDROCHLORIDE
  2. ESTRADIOL 0.01% CREAM [Suspect]
     Active Substance: ESTRADIOL
     Indication: HORMONE THERAPY
     Dosage: ?          QUANTITY:1 APPLICATOR;OTHER FREQUENCY:2 TIMES PER WEEK;?
     Route: 067
     Dates: start: 20190201
  3. ESTRACE [Concomitant]
     Active Substance: ESTRADIOL
  4. VITAMIN D3 [Concomitant]
     Active Substance: CHOLECALCIFEROL
  5. CLARITIN PRN [Concomitant]

REACTIONS (2)
  - Vaginal ulceration [None]
  - Product substitution issue [None]

NARRATIVE: CASE EVENT DATE: 20190210
